FAERS Safety Report 7073658-9 (Version None)
Quarter: 2010Q4

REPORT INFORMATION
  Report Type: 
  Country: None (occurrence: None)
  Receive Date: 20101029
  Receipt Date: 20100726
  Transmission Date: 20110411
  Serious: No
  Sender: FDA-Public Use
  Company Number: A0872356A

PATIENT
  Age: 58 Year
  Sex: Female

DRUGS (9)
  1. ADVAIR DISKUS 100/50 [Suspect]
     Dosage: 1PUFF TWICE PER DAY
     Route: 055
     Dates: start: 20100501, end: 20100601
  2. LEXAPRO [Concomitant]
  3. SIMVASTATIN [Concomitant]
  4. AMBIEN [Concomitant]
  5. MULTI-VITAMIN [Concomitant]
  6. CHONDROITIN [Concomitant]
  7. FISH OIL [Concomitant]
  8. VITAMIN D [Concomitant]
  9. ASPIRIN [Concomitant]

REACTIONS (2)
  - MYALGIA [None]
  - PAIN [None]
